FAERS Safety Report 5387622-9 (Version None)
Quarter: 2007Q3

REPORT INFORMATION
  Report Type: 
  Country: None (occurrence: None)
  Receive Date: 20070712
  Receipt Date: 20070626
  Transmission Date: 20080115
  Serious: Yes (Other)
  Sender: FDA-Public Use
  Company Number: 8025191

PATIENT
  Age: 10 Year
  Sex: Male
  Weight: 40.1 kg

DRUGS (2)
  1. EQUASYM [Suspect]
     Indication: ATTENTION DEFICIT/HYPERACTIVITY DISORDER
     Dosage: 20 MG 1/D
     Dates: start: 20070205, end: 20070504
  2. EQUASYM [Suspect]
     Indication: ATTENTION DEFICIT/HYPERACTIVITY DISORDER
     Dosage: 30 MG 1/D
     Dates: start: 20070504

REACTIONS (3)
  - NAUSEA [None]
  - TIC [None]
  - VOMITING [None]
